FAERS Safety Report 7208265-8 (Version None)
Quarter: 2010Q4

REPORT INFORMATION
  Report Type: 
  Country: None (occurrence: None)
  Receive Date: 20101126
  Receipt Date: 20101025
  Transmission Date: 20110411
  Serious: Yes (Hospitalization, Other)
  Sender: FDA-Public Use
  Company Number: 312662

PATIENT
  Age: 48 Year
  Sex: Male
  Weight: 104.3 kg

DRUGS (11)
  1. VICTOZA [Suspect]
     Indication: TYPE 2 DIABETES MELLITUS
     Dosage: 0.6 MG, QD, SUBCUTANEOUS ; 1.2 MG, QD, SUBCUTANEOUS ; 1.2 U, QD, SUBCUTANEOUS
     Route: 058
     Dates: start: 20100629, end: 20100701
  2. VICTOZA [Suspect]
     Indication: TYPE 2 DIABETES MELLITUS
     Dosage: 0.6 MG, QD, SUBCUTANEOUS ; 1.2 MG, QD, SUBCUTANEOUS ; 1.2 U, QD, SUBCUTANEOUS
     Route: 058
     Dates: start: 20100629, end: 20100716
  3. VICTOZA [Suspect]
     Indication: TYPE 2 DIABETES MELLITUS
     Dosage: 0.6 MG, QD, SUBCUTANEOUS ; 1.2 MG, QD, SUBCUTANEOUS ; 1.2 U, QD, SUBCUTANEOUS
     Route: 058
     Dates: start: 20100309
  4. JANUVIA [Suspect]
     Indication: TYPE 2 DIABETES MELLITUS
     Dates: end: 20100629
  5. JANUMET [Concomitant]
  6. AMARYL [Concomitant]
  7. LISINOPRIL [Concomitant]
  8. NEXIUM [Concomitant]
  9. ASPIRIN [Concomitant]
  10. CYANOCOBALAMIN [Concomitant]
  11. LORTAB [Concomitant]

REACTIONS (2)
  - ILEUS [None]
  - PANCREATITIS [None]
